FAERS Safety Report 4917940-7 (Version None)
Quarter: 2006Q1

REPORT INFORMATION
  Report Type: 
  Country: None (occurrence: None)
  Receive Date: 20060221
  Receipt Date: 20051026
  Transmission Date: 20060701
  Serious: Yes (Disabling, Other)
  Sender: FDA-Public Use
  Company Number: US-MERCK-0510USA09446

PATIENT
  Age: 63 Year
  Sex: Male
  Weight: 106 kg

DRUGS (4)
  1. VIOXX [Suspect]
     Indication: JOINT INJURY
     Route: 048
     Dates: start: 20010126, end: 20040901
  2. VIOXX [Suspect]
     Indication: ARTHRITIS
     Route: 048
     Dates: start: 20010126, end: 20040901
  3. ACCUPRIL [Concomitant]
     Route: 065
     Dates: start: 19990101
  4. TOPROL-XL [Concomitant]
     Route: 048
     Dates: start: 19990101

REACTIONS (5)
  - BLOOD CHOLESTEROL INCREASED [None]
  - CEREBROVASCULAR ACCIDENT [None]
  - DEPRESSION [None]
  - JOINT INJURY [None]
  - NEUROPATHY PERIPHERAL [None]
